FAERS Safety Report 13462563 (Version 1)
Quarter: 2017Q2

REPORT INFORMATION
  Report Type: Spontaneous
  Country: GB (occurrence: GB)
  Receive Date: 20170420
  Receipt Date: 20170420
  Transmission Date: 20170830
  Serious: Yes (Other)
  Sender: FDA-Public Use
  Company Number: GB-TEVA-759484ACC

PATIENT
  Age: 79 Year
  Sex: Female

DRUGS (2)
  1. BISOPROLOL [Suspect]
     Active Substance: BISOPROLOL
  2. APIXABAN [Concomitant]
     Active Substance: APIXABAN
     Dates: start: 201608

REACTIONS (3)
  - Dyspnoea [Unknown]
  - Wheezing [Unknown]
  - Contraindicated product administered [Unknown]
